FAERS Safety Report 6931633-6 (Version None)
Quarter: 2010Q3

REPORT INFORMATION
  Report Type: 
  Country: None (occurrence: None)
  Receive Date: 20100819
  Receipt Date: 20100723
  Transmission Date: 20110219
  Serious: Yes (Hospitalization)
  Sender: FDA-Public Use
  Company Number: CHPA2010IT12026

PATIENT
  Sex: Male

DRUGS (3)
  1. IBUPROFEN (NCH) [Suspect]
     Dosage: UNK, UNK
  2. PARACETAMOL (NGX) [Suspect]
     Dosage: UNK, UNK
  3. DICLOFENAC [Suspect]
     Dosage: UNK, UNK

REACTIONS (1)
  - HEPATITIS [None]
